FAERS Safety Report 7298574-9 (Version None)
Quarter: 2011Q1

REPORT INFORMATION
  Report Type: 
  Country: None (occurrence: None)
  Receive Date: 20110217
  Receipt Date: 20110214
  Transmission Date: 20110831
  Serious: Yes (Other)
  Sender: FDA-Public Use
  Company Number: AU-PFIZER INC-2011033542

PATIENT
  Age: 42 Year
  Sex: Male

DRUGS (7)
  1. NUROFEN PLUS [Concomitant]
  2. OLANZAPINE [Concomitant]
  3. CHAMPIX [Suspect]
     Dosage: UNK
     Dates: start: 20100922
  4. PEGASYS [Suspect]
     Dosage: 180 UG, WEEKLY
     Route: 058
     Dates: start: 20101013
  5. MIRTAZAPINE [Concomitant]
  6. RANITIDINE [Concomitant]
  7. RIBAVIRIN [Suspect]
     Dosage: 1200 MG, 1X/DAY
     Route: 048
     Dates: start: 20101013

REACTIONS (3)
  - ANAEMIA [None]
  - NEUTROPENIA [None]
  - THROMBOCYTOPENIA [None]
